FAERS Safety Report 5458653-5 (Version None)
Quarter: 2007Q3

REPORT INFORMATION
  Report Type: 
  Country: None (occurrence: None)
  Receive Date: 20070919
  Receipt Date: 20070810
  Transmission Date: 20080115
  Serious: Yes (Hospitalization, Other)
  Sender: FDA-Public Use
  Company Number: US-ASTRAZENECA-2007UW07640

PATIENT
  Age: 59 Year
  Sex: Female
  Weight: 90.7 kg

DRUGS (25)
  1. SEROQUEL [Suspect]
     Indication: SLEEP DISORDER
     Route: 048
     Dates: start: 20070321
  2. SEROQUEL [Suspect]
     Indication: ANXIETY
     Route: 048
     Dates: start: 20070321
  3. SEROQUEL [Suspect]
     Route: 048
     Dates: start: 20070401
  4. SEROQUEL [Suspect]
     Route: 048
     Dates: start: 20070401
  5. SEROQUEL [Suspect]
     Route: 048
     Dates: start: 20070802
  6. SEROQUEL [Suspect]
     Route: 048
     Dates: start: 20070802
  7. PROZAC [Concomitant]
  8. KLONOPIN [Concomitant]
  9. AMBIEN CR [Concomitant]
  10. MELATONIN [Concomitant]
  11. SYNTHROID [Concomitant]
  12. AMARYL [Concomitant]
  13. LISINOPRIL [Concomitant]
     Route: 048
  14. BECONASE SPRAY [Concomitant]
  15. AVANDIA [Concomitant]
  16. ALPRAZOLAM [Concomitant]
  17. ZYRTEC [Concomitant]
  18. LIPITOR [Concomitant]
  19. PRILOSEC [Concomitant]
  20. FORTAMET [Concomitant]
  21. SINGULAIR [Concomitant]
  22. XANAX [Concomitant]
  23. ACTOS [Concomitant]
  24. ASTELIN [Concomitant]
  25. ROZERM [Concomitant]

REACTIONS (8)
  - ANXIETY [None]
  - CONTUSION [None]
  - DIABETES MELLITUS INADEQUATE CONTROL [None]
  - ENERGY INCREASED [None]
  - HAEMORRHAGE [None]
  - INCREASED UPPER AIRWAY SECRETION [None]
  - PRURITUS [None]
  - VASCULITIS [None]
